FAERS Safety Report 15625950 (Version 1)
Quarter: 2018Q4

REPORT INFORMATION
  Report Type: Spontaneous
  Country: US (occurrence: US)
  Receive Date: 20181116
  Receipt Date: 20181116
  Transmission Date: 20190205
  Serious: No
  Sender: FDA-Public Use
  Company Number: None

PATIENT
  Age: 54 Year
  Sex: Female
  Weight: 67.5 kg

DRUGS (2)
  1. PREDNISONE. [Concomitant]
     Active Substance: PREDNISONE
  2. READI-CAT 2 [Suspect]
     Active Substance: BARIUM SULFATE
     Indication: ABDOMEN SCAN
     Dosage: ?          OTHER FREQUENCY:2 - PM AND AM;?
     Route: 048
     Dates: start: 20181115, end: 20181116

REACTIONS (3)
  - Abdominal pain [None]
  - Diarrhoea [None]
  - Condition aggravated [None]

NARRATIVE: CASE EVENT DATE: 20181115
